FAERS Safety Report 22095459 (Version 3)
Quarter: 2023Q1

REPORT INFORMATION
  Report Type: Spontaneous
  Country: US (occurrence: US)
  Receive Date: 20230314
  Receipt Date: 20230322
  Transmission Date: 20230418
  Serious: No
  Sender: FDA-Public Use
  Company Number: US-PFIZER INC-202300104637

PATIENT
  Age: 64 Year
  Sex: Female

DRUGS (1)
  1. CHANTIX [Suspect]
     Active Substance: VARENICLINE TARTRATE
     Indication: Smoking cessation therapy
     Dosage: UNK, 2X/DAY (TOOK 2 A DAY; ONE IN THE MORNING AND ONE AT NIGHT)

REACTIONS (2)
  - Drug ineffective [Unknown]
  - Tobacco user [Unknown]
